FAERS Safety Report 6371233-2 (Version None)
Quarter: 2009Q3

REPORT INFORMATION
  Report Type: 
  Country: None (occurrence: None)
  Receive Date: 20090923
  Receipt Date: 20081205
  Transmission Date: 20100115
  Serious: No
  Sender: FDA-Public Use
  Company Number: US-ASTRAZENECA-2007UW02708

PATIENT
  Sex: Male

DRUGS (5)
  1. SEROQUEL [Suspect]
     Indication: INSOMNIA
     Route: 048
     Dates: start: 20040101
  2. SEROQUEL [Suspect]
     Route: 048
  3. LAMICTAL [Concomitant]
  4. GEODON [Concomitant]
  5. COGENTIN [Concomitant]

REACTIONS (5)
  - INCREASED APPETITE [None]
  - MUSCULAR WEAKNESS [None]
  - RETCHING [None]
  - VOMITING [None]
  - WEIGHT INCREASED [None]
